FAERS Safety Report 5134474-8 (Version None)
Quarter: 2006Q4

REPORT INFORMATION
  Report Type: 
  Country: None (occurrence: None)
  Receive Date: 20061019
  Receipt Date: 20061004
  Transmission Date: 20070319
  Serious: Yes (Hospitalization)
  Sender: FDA-Public Use
  Company Number: REM_00278_2006

PATIENT
  Age: 27 Year
  Sex: Female
  Weight: 101.4 kg

DRUGS (9)
  1. REMODULIN [Suspect]
     Indication: PULMONARY HYPERTENSION
     Dosage: 47 NG/KG/MIN CONTINUOUS; IV
     Route: 042
  2. DIGOXIN [Concomitant]
  3. COUMADIN [Concomitant]
  4. ACETAMINOPHEN [Concomitant]
  5. DEPO-PROVERA [Concomitant]
  6. ZYRTEC [Concomitant]
  7. FLONASE [Concomitant]
  8. ASCORBIC ACID [Concomitant]
  9. VITAMIN CAP [Concomitant]

REACTIONS (4)
  - BACTERIAL INFECTION [None]
  - BLOOD CULTURE POSITIVE [None]
  - CATHETER RELATED INFECTION [None]
  - UPPER RESPIRATORY TRACT INFECTION [None]
